FAERS Safety Report 6356220-2 (Version None)
Quarter: 2009Q3

REPORT INFORMATION
  Report Type: 
  Country: None (occurrence: None)
  Receive Date: 20090911
  Receipt Date: 20090911
  Transmission Date: 20100115
  Serious: Yes (Life-Threatening, Hospitalization)
  Sender: FDA-Public Use
  Company Number: None

PATIENT
  Age: 1 Day
  Sex: Male
  Weight: 10 kg

DRUGS (1)
  1. LUVOX [Suspect]
     Indication: OBSESSIVE-COMPULSIVE DISORDER
     Dosage: ONCE A DAY
     Dates: start: 19990101, end: 20000201

REACTIONS (4)
  - CRANIOSYNOSTOSIS [None]
  - DOUBLE OUTLET RIGHT VENTRICLE [None]
  - MATERNAL DRUGS AFFECTING FOETUS [None]
  - OTOSCLEROSIS [None]
